FAERS Safety Report 7291626-9 (Version None)
Quarter: 2011Q1

REPORT INFORMATION
  Report Type: 
  Country: None (occurrence: None)
  Receive Date: 20110202
  Receipt Date: 20110201
  Transmission Date: 20110831
  Serious: Yes (Other)
  Sender: FDA-Public Use
  Company Number: SP03446

PATIENT
  Age: 37 Year
  Sex: Male
  Weight: 99 kg

DRUGS (8)
  1. INSULIN HUMAN [Concomitant]
  2. SIMVASTATIN [Concomitant]
  3. OLMESARTAN MEDOXOMIL [Concomitant]
  4. MOVIPREP [Suspect]
     Indication: PREOPERATIVE CARE
     Dosage: 2 LIT, SPLIT DOSE, ORAL
     Route: 048
     Dates: start: 20110113, end: 20110114
  5. MOVIPREP [Suspect]
     Indication: COLONOSCOPY
     Dosage: 2 LIT, SPLIT DOSE, ORAL
     Route: 048
     Dates: start: 20110113, end: 20110114
  6. INSULIN DETERMIR [Concomitant]
  7. KALIUMJODID [Concomitant]
  8. INSULIN ASPART [Concomitant]

REACTIONS (2)
  - BLOOD GLUCOSE INCREASED [None]
  - GLYCOSYLATED HAEMOGLOBIN INCREASED [None]
